FAERS Safety Report 16533619 (Version 2)
Quarter: 2019Q3

REPORT INFORMATION
  Report Type: Spontaneous
  Country: US (occurrence: US)
  Receive Date: 20190704
  Receipt Date: 20190719
  Transmission Date: 20191004
  Serious: No
  Sender: FDA-Public Use
  Company Number: US-DRREDDYS-USA/USA/19/0111446

PATIENT
  Age: 35 Year
  Sex: Male

DRUGS (2)
  1. OLANZAPINE FILM-COATED TABLET [Suspect]
     Active Substance: OLANZAPINE
     Route: 065
     Dates: start: 2016
  2. OLANZAPINE FILM-COATED TABLET [Suspect]
     Active Substance: OLANZAPINE
     Indication: TIC
     Route: 048
     Dates: start: 2016

REACTIONS (3)
  - Weight increased [Recovering/Resolving]
  - Headache [Unknown]
  - Sedation [Recovered/Resolved]
